FAERS Safety Report 5298377-0 (Version None)
Quarter: 2007Q2

REPORT INFORMATION
  Report Type: 
  Country: None (occurrence: None)
  Receive Date: 20070406
  Receipt Date: 20070326
  Transmission Date: 20071010
  Serious: Yes (Hospitalization)
  Sender: FDA-Public Use
  Company Number: S07-FRA-01446-01

PATIENT
  Age: 77 Year
  Sex: Female

DRUGS (5)
  1. ESCITALOPRAM [Suspect]
     Dates: start: 20070129, end: 20070205
  2. LOZOL [Suspect]
     Indication: ESSENTIAL HYPERTENSION
     Dosage: 5 MG QD PO
     Route: 048
     Dates: end: 20070205
  3. PHYSIOTENS (MOXONIDINE) [Suspect]
     Indication: ESSENTIAL HYPERTENSION
     Dosage: 0.4 MG QD PO
     Route: 048
     Dates: end: 20070205
  4. LORAZEPAM [Concomitant]
  5. OLMETEC (OLMESARTAN MEDOXOMIL) [Concomitant]

REACTIONS (5)
  - HAEMOCONCENTRATION [None]
  - HYPONATRAEMIA [None]
  - LOSS OF CONSCIOUSNESS [None]
  - MALAISE [None]
  - ORTHOSTATIC HYPOTENSION [None]
